FAERS Safety Report 8389875-1 (Version None)
Quarter: 2012Q2

REPORT INFORMATION
  Report Type: 
  Country: None (occurrence: None)
  Receive Date: 20120521
  Receipt Date: 20120516
  Transmission Date: 20120825
  Serious: Yes (Hospitalization, Other)
  Sender: FDA-Public Use
  Company Number: 2011SP019410

PATIENT
  Age: 26 Year
  Sex: Female
  Weight: 113.3993 kg

DRUGS (3)
  1. NUVARING [Suspect]
     Indication: CONTRACEPTION
     Dates: start: 20030401
  2. SEROQUEL [Concomitant]
  3. AMBIEN [Concomitant]

REACTIONS (29)
  - CHEST PAIN [None]
  - PAIN [None]
  - HAEMOGLOBIN DECREASED [None]
  - PARAESTHESIA [None]
  - ABORTION THREATENED [None]
  - PREGNANCY WITH CONTRACEPTIVE DEVICE [None]
  - RENAL COLIC [None]
  - ECTOPIC PREGNANCY [None]
  - ABORTION SPONTANEOUS [None]
  - POSTPARTUM DISORDER [None]
  - MEDICAL DEVICE COMPLICATION [None]
  - ABORTION MISSED [None]
  - DEEP VEIN THROMBOSIS [None]
  - PULMONARY EMBOLISM [None]
  - PLEURISY [None]
  - HAEMATOCRIT DECREASED [None]
  - PYELONEPHRITIS [None]
  - VULVOVAGINAL PAIN [None]
  - PRE-ECLAMPSIA [None]
  - THROMBOSIS [None]
  - NAUSEA [None]
  - PLEURAL EFFUSION [None]
  - PNEUMONIA [None]
  - FIBRIN D DIMER INCREASED [None]
  - DIZZINESS [None]
  - ATELECTASIS [None]
  - URINARY TRACT INFECTION [None]
  - CONSTIPATION [None]
  - MATERNAL EXPOSURE DURING PREGNANCY [None]
